FAERS Safety Report 23632030 (Version 1)
Quarter: 2024Q1

REPORT INFORMATION
  Report Type: Spontaneous
  Country: US (occurrence: None)
  Receive Date: 20240313
  Receipt Date: 20240313
  Transmission Date: 20240410
  Serious: No
  Sender: FDA-Public Use
  Company Number: None

PATIENT
  Age: 81 Year
  Sex: Female
  Weight: 81 kg

DRUGS (1)
  1. LEQVIO [Suspect]
     Active Substance: INCLISIRAN SODIUM
     Indication: Hyperlipidaemia
     Dosage: OTHER FREQUENCY : ONCE;?
     Route: 058
     Dates: start: 20240312, end: 20240312

REACTIONS (4)
  - Dyspnoea [None]
  - Headache [None]
  - Abdominal discomfort [None]
  - Musculoskeletal chest pain [None]

NARRATIVE: CASE EVENT DATE: 20240312
